FAERS Safety Report 5567206-X (Version None)
Quarter: 2007Q4

REPORT INFORMATION
  Report Type: 
  Country: None (occurrence: None)
  Receive Date: 20071219
  Receipt Date: 20071217
  Transmission Date: 20080405
  Serious: Yes (Hospitalization, Other)
  Sender: FDA-Public Use
  Company Number: HQWYE732920APR07

PATIENT
  Sex: Male
  Weight: 86.7 kg

DRUGS (16)
  1. RAPAMUNE [Suspect]
     Indication: PROPHYLAXIS AGAINST TRANSPLANT REJECTION
     Route: 048
     Dates: start: 20030130
  2. NEURONTIN [Concomitant]
  3. LOMOTIL [Concomitant]
  4. LANTUS [Concomitant]
  5. VITAMIN B COMPLEX CAP [Concomitant]
  6. ARANESP [Concomitant]
  7. NOVOLOG [Concomitant]
  8. AMBIEN [Concomitant]
  9. PERCOCET [Concomitant]
  10. BETAMETHASONE VALERATE [Concomitant]
  11. PREVACID [Concomitant]
  12. FISH OIL [Concomitant]
  13. ZAROXOLYN [Concomitant]
  14. SPIRONOLACTONE [Concomitant]
  15. VITAMIN E [Concomitant]
  16. DAPSONE [Concomitant]

REACTIONS (1)
  - RENAL FAILURE [None]
